FAERS Safety Report 5489701-4 (Version None)
Quarter: 2007Q4

REPORT INFORMATION
  Report Type: 
  Country: None (occurrence: None)
  Receive Date: 20071010
  Receipt Date: 20070312
  Transmission Date: 20080405
  Serious: Yes (Other)
  Sender: FDA-Public Use
  Company Number: 2007SP004727

PATIENT
  Sex: Female

DRUGS (6)
  1. PROVENTIL-HFA [Suspect]
     Indication: ASTHMA
     Dosage: PO
     Route: 048
  2. WARRICK ALBUTEROL [Concomitant]
  3. PROAIR HFA [Concomitant]
  4. ADVAIR DISKUS 100/50 [Concomitant]
  5. ACCOLATE [Concomitant]
  6. SINGULAIR [Concomitant]

REACTIONS (9)
  - ASTHMA [None]
  - BLOOD PRESSURE INCREASED [None]
  - DISTURBANCE IN ATTENTION [None]
  - DYSPNOEA [None]
  - HEART RATE INCREASED [None]
  - HYPERHIDROSIS [None]
  - THERAPEUTIC PRODUCT INEFFECTIVE [None]
  - TREMOR [None]
  - VERTIGO [None]
